FAERS Safety Report 7761593-X (Version None)
Quarter: 2011Q3

REPORT INFORMATION
  Report Type: 
  Country: None (occurrence: None)
  Receive Date: 20110920
  Receipt Date: 20110726
  Transmission Date: 20111222
  Serious: Yes (Other)
  Sender: FDA-Public Use
  Company Number: DE-UCBSA-028144

PATIENT
  Sex: Female
  Weight: 72 kg

DRUGS (3)
  1. CERTOLIZUMAB PEGOL [Suspect]
     Indication: RHEUMATOID ARTHRITIS
     Route: 058
     Dates: start: 20110218
  2. TRAMADOL HCL [Concomitant]
     Indication: RHEUMATOID ARTHRITIS
     Dosage: 37.5-325 MG
     Dates: start: 20110122
  3. PREDNISOLONE [Concomitant]
     Dosage: 5MG

REACTIONS (1)
  - HYPERSENSITIVITY [None]
